FAERS Safety Report 4962345-6 (Version None)
Quarter: 2006Q1

REPORT INFORMATION
  Report Type: 
  Country: None (occurrence: None)
  Receive Date: 20060329
  Receipt Date: 20060316
  Transmission Date: 20060701
  Serious: Yes (Other)
  Sender: FDA-Public Use
  Company Number: HQWYE386917MAR06

PATIENT
  Age: 48 Year
  Sex: Female

DRUGS (1)
  1. EFFEXOR XR [Suspect]

REACTIONS (3)
  - INTENTIONAL SELF-INJURY [None]
  - SELF-INJURIOUS IDEATION [None]
  - THERMAL BURN [None]
